FAERS Safety Report 4994297-7 (Version None)
Quarter: 2006Q2

REPORT INFORMATION
  Report Type: 
  Country: None (occurrence: None)
  Receive Date: 20060503
  Receipt Date: 20060424
  Transmission Date: 20061013
  Serious: Yes (Other)
  Sender: FDA-Public Use
  Company Number: 2006055323

PATIENT
  Sex: Male
  Weight: 86.1834 kg

DRUGS (3)
  1. LIPITOR [Suspect]
     Indication: BLOOD CHOLESTEROL INCREASED
     Dosage: 20 MG (20 MG, 1 IN 1 D), UNKNOWN
     Route: 065
  2. ASPIRIN [Concomitant]
  3. PLAVIX [Concomitant]

REACTIONS (12)
  - ANGINA PECTORIS [None]
  - ARTERIAL DISORDER [None]
  - BACK PAIN [None]
  - CARDIAC DISORDER [None]
  - CONTUSION [None]
  - DISEASE RECURRENCE [None]
  - FALL [None]
  - GOUT [None]
  - JOINT INJURY [None]
  - LIMB INJURY [None]
  - MYALGIA [None]
  - PAIN [None]
